FAERS Safety Report 17795290 (Version 4)
Quarter: 2020Q3

REPORT INFORMATION
  Report Type: Not Available
  Country: US (occurrence: US)
  Receive Date: 20200515
  Receipt Date: 20200909
  Transmission Date: 20201102
  Serious: No
  Sender: FDA-Public Use
  Company Number: US-NEUROCRINE BIOSCIENCES INC.-2020NBI01473

PATIENT
  Age: 63 Year
  Sex: Female

DRUGS (1)
  1. INGREZZA [Suspect]
     Active Substance: VALBENAZINE
     Indication: TARDIVE DYSKINESIA
     Route: 048
     Dates: start: 20200327

REACTIONS (7)
  - Fall [Not Recovered/Not Resolved]
  - Fatigue [Unknown]
  - Dyskinesia [Unknown]
  - Therapeutic product effect decreased [Unknown]
  - Joint instability [Not Recovered/Not Resolved]
  - Dehydration [Unknown]
  - Hyperhidrosis [Unknown]

NARRATIVE: CASE EVENT DATE: 2020
